FAERS Safety Report 4693811-9 (Version None)
Quarter: 2005Q2

REPORT INFORMATION
  Report Type: 
  Country: None (occurrence: None)
  Receive Date: 20050616
  Receipt Date: 20050609
  Transmission Date: 20051028
  Serious: Yes (Hospitalization)
  Sender: FDA-Public Use
  Company Number: OMPQ-NO-0506S-0855

PATIENT
  Age: 30 Year
  Sex: Female

DRUGS (2)
  1. OMNIPAQUE 140 [Suspect]
     Indication: SPLENIC VEIN THROMBOSIS
     Dosage: SINGLE DOSE
     Dates: start: 20050608, end: 20050608
  2. LOCAL ANAESTHESIA [Concomitant]

REACTIONS (4)
  - CHEST PAIN [None]
  - COMA [None]
  - FEELING COLD [None]
  - HYPOAESTHESIA [None]
